FAERS Safety Report 23755158 (Version 2)
Quarter: 2024Q2

REPORT INFORMATION
  Report Type: Other
  Country: GB (occurrence: GB)
  Receive Date: 20240418
  Receipt Date: 20240508
  Transmission Date: 20240716
  Serious: Yes (Disabling, Other)
  Sender: FDA-Public Use
  Company Number: None

PATIENT
  Age: 38 Year

DRUGS (2)
  1. SERTRALINE [Suspect]
     Active Substance: SERTRALINE HYDROCHLORIDE
     Indication: Product used for unknown indication
     Dosage: UNK MG
     Route: 065
     Dates: start: 20160901
  2. SERTRALINE [Suspect]
     Active Substance: SERTRALINE HYDROCHLORIDE
     Dosage: 25 MG LOWEST DOSE (4.5 YEAR)
     Route: 065
     Dates: end: 202207

REACTIONS (5)
  - Hypoaesthesia [Not Recovered/Not Resolved]
  - Cold-stimulus headache [Not Recovered/Not Resolved]
  - Influenza [Not Recovered/Not Resolved]
  - Drug withdrawal syndrome [Unknown]
  - Head discomfort [Unknown]

NARRATIVE: CASE EVENT DATE: 20220701
